FAERS Safety Report 5662639-5 (Version None)
Quarter: 2008Q1

REPORT INFORMATION
  Report Type: 
  Country: None (occurrence: None)
  Receive Date: 20080313
  Receipt Date: 20080306
  Transmission Date: 20080703
  Serious: Yes (Other)
  Sender: FDA-Public Use
  Company Number: PHBS2008BR01391

PATIENT
  Age: 51 Year
  Sex: Male
  Weight: 105 kg

DRUGS (2)
  1. CODATEN [Suspect]
     Indication: PAIN
     Dosage: 50 MG, Q2H
     Route: 048
  2. CIPRO [Concomitant]
     Indication: OSTEOMYELITIS
     Dosage: 500 MG, Q12H
     Route: 048

REACTIONS (8)
  - BONE DEBRIDEMENT [None]
  - DEEP VEIN THROMBOSIS [None]
  - HAEMATURIA [None]
  - NECROSIS [None]
  - OSTEOMYELITIS [None]
  - SURGERY [None]
  - THROMBECTOMY [None]
  - URINARY BLADDER HAEMORRHAGE [None]
